FAERS Safety Report 8043712-3 (Version None)
Quarter: 2012Q1

REPORT INFORMATION
  Report Type: 
  Country: None (occurrence: None)
  Receive Date: 20120113
  Receipt Date: 20120105
  Transmission Date: 20120608
  Serious: Yes (Other)
  Sender: FDA-Public Use
  Company Number: JP-BRISTOL-MYERS SQUIBB COMPANY-16332645

PATIENT
  Age: 78 Year
  Sex: Male

DRUGS (1)
  1. PARAPLATIN [Suspect]

REACTIONS (1)
  - DUODENAL PERFORATION [None]
